FAERS Safety Report 9415382 (Version 3)
Quarter: 2013Q3

REPORT INFORMATION
  Report Type: Spontaneous
  Country: US (occurrence: US)
  Receive Date: 20130723
  Receipt Date: 20130913
  Transmission Date: 20140515
  Serious: No
  Sender: FDA-Public Use
  Company Number: US-PFIZER INC-2013212256

PATIENT
  Sex: Male

DRUGS (2)
  1. MEDROL [Suspect]
     Indication: PAIN
     Dosage: UNK
  2. OXYCONTIN [Concomitant]
     Indication: PAIN
     Dosage: UNK

REACTIONS (2)
  - Product label confusion [Unknown]
  - Drug ineffective [Unknown]
